FAERS Safety Report 7864557-0 (Version None)
Quarter: 2011Q4

REPORT INFORMATION
  Report Type: 
  Country: None (occurrence: None)
  Receive Date: 20111028
  Receipt Date: 20111025
  Transmission Date: 20120403
  Serious: No
  Sender: FDA-Public Use
  Company Number: US-PFIZER INC-2011260101

PATIENT
  Sex: Female
  Weight: 95.238 kg

DRUGS (2)
  1. LYRICA [Suspect]
     Indication: NEUROPATHY PERIPHERAL
     Dosage: 100 MG, 3X/DAY
     Route: 048
     Dates: start: 20080101
  2. SYNTHROID [Concomitant]
     Dosage: UNK

REACTIONS (4)
  - BLOOD TEST ABNORMAL [None]
  - FEELING ABNORMAL [None]
  - HYPOAESTHESIA [None]
  - PARAESTHESIA [None]
